FAERS Safety Report 7523053-0 (Version None)
Quarter: 2011Q2

REPORT INFORMATION
  Report Type: 
  Country: None (occurrence: None)
  Receive Date: 20110525
  Receipt Date: 20110525
  Transmission Date: 20111010
  Serious: No
  Sender: FDA-Public Use
  Company Number: 2011SP020557

PATIENT
  Age: 46 Year
  Sex: Female
  Weight: 52.6173 kg

DRUGS (3)
  1. MIRALAX [Suspect]
     Indication: CONSTIPATION
     Dosage: 17 GM;QD;PO ; 17 GM;QD;PO
     Route: 048
     Dates: start: 20110511
  2. MIRALAX [Suspect]
     Indication: CONSTIPATION
     Dosage: 17 GM;QD;PO ; 17 GM;QD;PO
     Route: 048
     Dates: start: 20110501
  3. COMPLEX /00212701/ [Concomitant]

REACTIONS (1)
  - RECTAL HAEMORRHAGE [None]
